FAERS Safety Report 13402548 (Version 1)
Quarter: 2017Q2

REPORT INFORMATION
  Report Type: Report from Study
  Country: IT (occurrence: IT)
  Receive Date: 20170404
  Receipt Date: 20170404
  Transmission Date: 20170830
  Serious: Yes (Other)
  Sender: FDA-Public Use
  Company Number: IT-MYLANLABS-2017M1020373

PATIENT

DRUGS (3)
  1. FLUGERAL [Concomitant]
     Indication: HEADACHE
     Dosage: 1 DF, QD
     Route: 048
  2. BRUFEN 600 MG GRANULATO EFFERVESCENTE [Suspect]
     Active Substance: IBUPROFEN
     Indication: OROPHARYNGEAL PAIN
     Dosage: 1 DF, QD
     Route: 048
     Dates: start: 20170321, end: 20170325
  3. ZIMOX [Suspect]
     Active Substance: AMOXICILLIN
     Indication: TONSILLITIS
     Dosage: 2 G, QD
     Route: 048
     Dates: start: 20170321, end: 20170325

REACTIONS (1)
  - Erythema [Recovered/Resolved]

NARRATIVE: CASE EVENT DATE: 20170325
